APPROVED DRUG PRODUCT: VERELAN
Active Ingredient: VERAPAMIL HYDROCHLORIDE
Strength: 120MG
Dosage Form/Route: CAPSULE, EXTENDED RELEASE;ORAL
Application: N019614 | Product #001 | TE Code: AB
Applicant: AZURITY PHARMACEUTICALS INC
Approved: May 29, 1990 | RLD: Yes | RS: No | Type: RX